FAERS Safety Report 5703529-9 (Version None)
Quarter: 2008Q2

REPORT INFORMATION
  Report Type: 
  Country: None (occurrence: None)
  Receive Date: 20080411
  Receipt Date: 20080331
  Transmission Date: 20081010
  Serious: Yes (Other)
  Sender: FDA-Public Use
  Company Number: US-PFIZER INC-2008030522

PATIENT
  Sex: Female
  Weight: 88.181 kg

DRUGS (3)
  1. CHANTIX [Suspect]
     Indication: SMOKING CESSATION THERAPY
  2. SYNTHROID [Concomitant]
  3. MEDROXYPROGESTERONE [Concomitant]

REACTIONS (8)
  - DIZZINESS [None]
  - EAR PAIN [None]
  - LETHARGY [None]
  - MUSCULAR WEAKNESS [None]
  - PHARYNGOLARYNGEAL PAIN [None]
  - REFLEXES ABNORMAL [None]
  - THROAT IRRITATION [None]
  - VISION BLURRED [None]
